FAERS Safety Report 18871446 (Version 1)
Quarter: 2021Q1

REPORT INFORMATION
  Report Type: Spontaneous
  Country: DK (occurrence: DK)
  Receive Date: 20210210
  Receipt Date: 20210210
  Transmission Date: 20210420
  Serious: Yes (Death, Other)
  Sender: FDA-Public Use
  Company Number: NVSC2021DK029758

PATIENT
  Age: 57 Year
  Sex: Female

DRUGS (2)
  1. CIPROFLOXACIN. [Suspect]
     Active Substance: CIPROFLOXACIN
     Indication: INFECTION
     Dosage: UNK
     Route: 065
     Dates: start: 20200720
  2. GLYPRESSIN [Concomitant]
     Active Substance: TERLIPRESSIN
     Indication: VARICOSE VEIN
     Dosage: UNK, DOSE GIVEN AT 11 AND 15:30
     Route: 065
     Dates: start: 20200720, end: 20200720

REACTIONS (1)
  - Cardiac arrest [Fatal]

NARRATIVE: CASE EVENT DATE: 20200720
